FAERS Safety Report 6039702-2 (Version None)
Quarter: 2009Q1

REPORT INFORMATION
  Report Type: 
  Country: None (occurrence: None)
  Receive Date: 20090116
  Receipt Date: 20090107
  Transmission Date: 20090719
  Serious: Yes (Other)
  Sender: FDA-Public Use
  Company Number: PHBS2009NL00452

PATIENT
  Age: 78 Year
  Sex: Female

DRUGS (7)
  1. PAMIDRONATE DISODIUM [Suspect]
     Route: 042
  2. ETIDRONATE DISODIUM [Suspect]
     Indication: MULTIPLE MYELOMA
     Route: 048
  3. ETIDRONATE DISODIUM [Suspect]
     Indication: OSTEOPOROSIS
  4. DEXAMETHASONE [Concomitant]
  5. PREDNISONE TAB [Concomitant]
  6. MELPHALAN [Concomitant]
  7. THALIDOMIDE [Concomitant]

REACTIONS (6)
  - BONE DISORDER [None]
  - INFECTION [None]
  - MAXILLOFACIAL OPERATION [None]
  - OSTEOMYELITIS [None]
  - OSTEONECROSIS [None]
  - SEQUESTRECTOMY [None]
